FAERS Safety Report 18066182 (Version 1)
Quarter: 2020Q3

REPORT INFORMATION
  Report Type: Spontaneous
  Country: CN (occurrence: CN)
  Receive Date: 20200724
  Receipt Date: 20200724
  Transmission Date: 20201103
  Serious: Yes (Hospitalization, Other)
  Sender: FDA-Public Use
  Company Number: CN-JNJFOC-20200728661

PATIENT
  Age: 73 Year
  Sex: Female

DRUGS (3)
  1. XARELTO [Interacting]
     Active Substance: RIVAROXABAN
     Indication: ATRIAL FIBRILLATION
  2. XARELTO [Suspect]
     Active Substance: RIVAROXABAN
     Indication: ANTICOAGULANT THERAPY
     Dosage: 15 MG, QD
     Route: 048
     Dates: start: 20190604, end: 20200212
  3. CELECOXIB. [Interacting]
     Active Substance: CELECOXIB
     Indication: ANTIINFLAMMATORY THERAPY
     Dosage: 200 MG, BID
     Route: 048
     Dates: start: 20190104, end: 20200212

REACTIONS (27)
  - Gastritis haemorrhagic [Unknown]
  - Hepatic calcification [Unknown]
  - Diarrhoea [Recovering/Resolving]
  - Melaena [Recovering/Resolving]
  - Renal disorder [Unknown]
  - Haematochezia [Recovering/Resolving]
  - Vomiting [Recovering/Resolving]
  - Off label use [Unknown]
  - Duodenal ulcer haemorrhage [Unknown]
  - Procalcitonin increased [Unknown]
  - Lymphadenopathy [Unknown]
  - Haematemesis [Recovering/Resolving]
  - Dizziness [Recovering/Resolving]
  - Arteriosclerosis coronary artery [Unknown]
  - Gout [Recovering/Resolving]
  - Faeces discoloured [Recovering/Resolving]
  - Labelled drug-drug interaction medication error [Unknown]
  - Gastrointestinal haemorrhage [Recovering/Resolving]
  - Aortic arteriosclerosis [Unknown]
  - Palpitations [Recovering/Resolving]
  - Pulmonary mass [Unknown]
  - Cardiomegaly [Unknown]
  - Gastric ulcer haemorrhage [Unknown]
  - Breast calcifications [Unknown]
  - Cholelithiasis [Unknown]
  - Troponin T increased [Unknown]
  - Asthenia [Recovering/Resolving]

NARRATIVE: CASE EVENT DATE: 20190604
